FAERS Safety Report 17671011 (Version 1)
Quarter: 2020Q2

REPORT INFORMATION
  Report Type: Report from Study
  Country: None (occurrence: US)
  Receive Date: 20200415
  Receipt Date: 20200415
  Transmission Date: 20200713
  Serious: Yes (Hospitalization)
  Sender: FDA-Public Use
  Company Number: US-ABBVIE-20K-163-3313811-00

PATIENT
  Sex: Male
  Weight: 103.51 kg

DRUGS (5)
  1. MELOXICAM. [Concomitant]
     Active Substance: MELOXICAM
     Indication: ARTHRALGIA
  2. ASPIRIN. [Concomitant]
     Active Substance: ASPIRIN
     Indication: PROPHYLAXIS
  3. METHOTREXATE. [Suspect]
     Active Substance: METHOTREXATE
     Indication: PSORIATIC ARTHROPATHY
     Route: 065
     Dates: start: 2007, end: 2016
  4. HUMIRA [Suspect]
     Active Substance: ADALIMUMAB
     Route: 058
     Dates: start: 2019
  5. HUMIRA [Suspect]
     Active Substance: ADALIMUMAB
     Indication: PSORIATIC ARTHROPATHY
     Route: 058
     Dates: start: 2007, end: 2019

REACTIONS (9)
  - Osteochondrosis [Recovered/Resolved]
  - Post procedural erythema [Recovered/Resolved]
  - Skin infection [Recovered/Resolved]
  - Postoperative wound complication [Recovered/Resolved]
  - Nervousness [Unknown]
  - Post procedural inflammation [Recovered/Resolved]
  - Post procedural complication [Unknown]
  - Skin irritation [Recovered/Resolved]
  - Arthralgia [Recovered/Resolved]
